FAERS Safety Report 10482462 (Version 1)
Quarter: 2014Q3

REPORT INFORMATION
  Report Type: Spontaneous
  Country: US (occurrence: US)
  Receive Date: 20140929
  Receipt Date: 20140929
  Transmission Date: 20150326
  Serious: Yes (Death, Other)
  Sender: FDA-Public Use
  Company Number: US-PFIZER INC-2014265934

PATIENT
  Age: 52 Year
  Sex: Female
  Weight: 61.22 kg

DRUGS (1)
  1. XANAX [Suspect]
     Active Substance: ALPRAZOLAM
     Indication: DEPRESSION
     Dosage: UNK

REACTIONS (3)
  - Completed suicide [Fatal]
  - Drug ineffective for unapproved indication [Unknown]
  - Hallucination [Unknown]
